FAERS Safety Report 14771231 (Version 2)
Quarter: 2019Q1

REPORT INFORMATION
  Report Type: Spontaneous
  Country: US (occurrence: US)
  Receive Date: 20180417
  Receipt Date: 20190325
  Transmission Date: 20190417
  Serious: No
  Sender: FDA-Public Use
  Company Number: US-ALLERGAN-1753170US

PATIENT
  Age: 100 Year
  Sex: Male

DRUGS (1)
  1. LUMIGAN [Suspect]
     Active Substance: BIMATOPROST
     Indication: MACULAR DEGENERATION
     Dosage: 2 GTT, QD
     Route: 047
     Dates: start: 2014

REACTIONS (3)
  - Eye irritation [Recovered/Resolved]
  - Product physical consistency issue [Unknown]
  - Product use in unapproved indication [Unknown]
